FAERS Safety Report 5781562-9 (Version None)
Quarter: 2008Q2

REPORT INFORMATION
  Report Type: 
  Country: None (occurrence: None)
  Receive Date: 20080623
  Receipt Date: 20080613
  Transmission Date: 20081010
  Serious: Yes (Other)
  Sender: FDA-Public Use
  Company Number: US-JNJFOC-20080604113

PATIENT
  Age: 80 Year
  Sex: Female
  Weight: 72.58 kg

DRUGS (8)
  1. TYLENOL (CAPLET) [Suspect]
     Route: 048
  2. TYLENOL (CAPLET) [Suspect]
     Indication: BACK PAIN
     Route: 048
  3. GLUCOSAMINE CHONDROITIN [Concomitant]
     Indication: BACK PAIN
  4. VITAMIN B-12 [Concomitant]
  5. ASCORBIC ACID [Concomitant]
     Indication: MENTAL DISORDER
  6. NEXIUM [Concomitant]
     Indication: IRRITABLE BOWEL SYNDROME
  7. MYCARDIS [Concomitant]
     Indication: HYPERTENSION
  8. ASPIRIN [Concomitant]

REACTIONS (1)
  - DEPRESSION [None]
